FAERS Safety Report 8488342-4 (Version None)
Quarter: 2012Q3

REPORT INFORMATION
  Report Type: 
  Country: None (occurrence: None)
  Receive Date: 20120705
  Receipt Date: 20120703
  Transmission Date: 20120928
  Serious: Yes (Other)
  Sender: FDA-Public Use
  Company Number: PHHO2012AR009949

PATIENT
  Sex: Female
  Weight: 63 kg

DRUGS (11)
  1. SIMULECT [Suspect]
     Indication: RENAL TRANSPLANT
     Dosage: 20 MG, UNK
     Route: 042
     Dates: start: 20120627, end: 20120629
  2. SIMULECT [Suspect]
     Dosage: 20 MG, UNK
     Route: 042
     Dates: start: 20120702
  3. MYFORTIC [Concomitant]
     Dosage: 1000 MG, UNK
     Route: 048
     Dates: start: 20120627
  4. METHYLPREDNISOLONE [Concomitant]
     Dosage: 60 MG, UNK
     Route: 048
     Dates: start: 20120627
  5. CARVEDILOL [Concomitant]
     Indication: HYPERTENSION
     Dosage: 6.25 MG, UNK
     Route: 048
     Dates: start: 20110601
  6. OMEPRAZOLE [Concomitant]
     Indication: DYSPNOEA
     Dosage: 20 MG, UNK
     Route: 048
     Dates: start: 20110601
  7. LOSARTAN POTASSIUM [Concomitant]
     Indication: PROTEINURIA
     Dosage: 50 MG, UNK
     Route: 048
     Dates: start: 20100601
  8. LEVOTHYROXINE SODIUM [Concomitant]
     Indication: HYPOTHYROIDISM
     Dosage: 100 MCG, UNK
     Route: 048
     Dates: start: 20110601
  9. AMLODIPINE [Concomitant]
     Indication: HYPERTENSION
     Dosage: 10 MG, UNK
     Route: 048
     Dates: start: 20110601
  10. PROGRAF [Suspect]
     Indication: RENAL TRANSPLANT
     Dosage: 10 MG, UNK
     Route: 048
     Dates: start: 20120627
  11. INSULIN [Concomitant]
     Indication: DIABETES MELLITUS
     Dosage: 500 IU, UNK
     Route: 058
     Dates: start: 20000501

REACTIONS (1)
  - CELLULITIS [None]
